FAERS Safety Report 8574334 (Version 7)
Quarter: 2013Q4

REPORT INFORMATION
  Report Type: Report from Study
  Country: US (occurrence: US)
  Receive Date: 20120522
  Receipt Date: 20131010
  Transmission Date: 20140711
  Serious: Yes (Death, Hospitalization)
  Sender: FDA-Public Use
  Company Number: US-ROCHE-1067866

PATIENT
  Age: 85 Year
  Sex: Male
  Weight: 68.5 kg

DRUGS (5)
  1. RITUXIMAB [Suspect]
     Indication: NON-HODGKIN^S LYMPHOMA
     Dosage: THE MOST RECENT DOSE BEFORE THE AE WAS 698 MG. RECIEVED 2 CYCLE TILL 22/MAR/2012
     Route: 042
     Dates: start: 20120223, end: 20120416
  2. INOTUZUMAB OZOGAMICIN [Suspect]
     Indication: NON-HODGKIN^S LYMPHOMA
     Dosage: THE MOST RECENT DOSE BEFORE THE AE WAS 2.5 MG.RECIEVED 2 CYCLE TILL 22/MAR/2012
     Route: 042
     Dates: start: 20120224, end: 20120416
  3. ALLOPURINOL [Concomitant]
     Route: 065
     Dates: start: 20120209, end: 20120425
  4. CRESTOR [Concomitant]
     Route: 065
     Dates: start: 2000, end: 20120425
  5. OXYCONTIN [Concomitant]
     Route: 065
     Dates: start: 201001, end: 20120425

REACTIONS (4)
  - Dehydration [Not Recovered/Not Resolved]
  - Fatigue [Not Recovered/Not Resolved]
  - Disease progression [Fatal]
  - Non-Hodgkin^s lymphoma [Fatal]
